FAERS Safety Report 8954937 (Version 1)
Quarter: 2012Q4

REPORT INFORMATION
  Report Type: 
  Country: US (occurrence: US)
  Receive Date: 20121210
  Receipt Date: 20121210
  Transmission Date: 20130627
  Serious: No
  Sender: FDA-Public Use
  Company Number: US-BAYER-2012-122283

PATIENT
  Age: 43 Year
  Sex: Female
  Weight: 90.7 kg

DRUGS (15)
  1. BETASERON [Suspect]
     Dosage: 0.25 ?g/ml, QOD
     Route: 058
     Dates: start: 1993
  2. DETROL [Concomitant]
  3. ULTRAM [Concomitant]
  4. MACRODANTIN [Concomitant]
  5. HYDROCHLOROTHIAZID [Concomitant]
  6. BACLOFEN [Concomitant]
  7. CIPROFLOXACIN [Concomitant]
  8. GLUCO/CHONDR 500 COMP [Concomitant]
  9. VITAMIN D [Concomitant]
  10. FISH OIL [Concomitant]
  11. ASPIRIN LOW [Concomitant]
  12. WOMEN^S MULTI [Concomitant]
  13. CRANBERRY [Concomitant]
  14. CALCIUM-MAGNSEIUM WITH ZINC [Concomitant]
  15. GARLIC [Concomitant]

REACTIONS (1)
  - Injection site induration [Unknown]
